FAERS Safety Report 10032340 (Version 2)
Quarter: 2014Q2

REPORT INFORMATION
  Report Type: Spontaneous
  Country: US (occurrence: US)
  Receive Date: 20140324
  Receipt Date: 20140414
  Transmission Date: 20141212
  Serious: No
  Sender: FDA-Public Use
  Company Number: US-TEVA-469964USA

PATIENT
  Age: 37 Year
  Sex: Male

DRUGS (5)
  1. QVAR [Suspect]
     Route: 055
  2. QVAR [Suspect]
     Route: 055
  3. NSAID^S [Concomitant]
  4. PSEUDOEPHEDRINE [Concomitant]
  5. WELLBUTRIN [Concomitant]

REACTIONS (2)
  - Headache [Recovered/Resolved with Sequelae]
  - Device malfunction [Unknown]
